FAERS Safety Report 24739145 (Version 1)
Quarter: 2024Q4

REPORT INFORMATION
  Report Type: Spontaneous
  Country: US (occurrence: US)
  Receive Date: 20241216
  Receipt Date: 20241216
  Transmission Date: 20250115
  Serious: No
  Sender: PFIZER
  Company Number: US-PFIZER INC-202400319214

PATIENT
  Age: 56 Year
  Sex: Female

DRUGS (8)
  1. XELJANZ XR [Suspect]
     Active Substance: TOFACITINIB CITRATE
     Dosage: 11 MG, DAILY
     Route: 048
     Dates: start: 20240824
  2. CLINDACIN ETZ [Concomitant]
     Active Substance: CLINDAMYCIN PHOSPHATE
  3. FISH OIL [Concomitant]
     Active Substance: FISH OIL
     Dosage: 200-300 MG
  4. FOLIC ACID [Concomitant]
     Active Substance: FOLIC ACID
     Dosage: 1 MG
  5. LEVOTHYROXINE SODIUM [Concomitant]
     Active Substance: LEVOTHYROXINE SODIUM
     Dosage: 112 UG
  6. VITAMINS [Concomitant]
     Active Substance: VITAMINS
  7. PROBIOTIC 10 BILLION DAILY MAINTENANCE [Concomitant]
  8. VITAMIN C [Concomitant]
     Active Substance: ASCORBIC ACID
     Dosage: 1000 MG

REACTIONS (1)
  - Acne [Recovered/Resolved]
